FAERS Safety Report 16449319 (Version 1)
Quarter: 2019Q2

REPORT INFORMATION
  Report Type: Spontaneous
  Country: CA (occurrence: CA)
  Receive Date: 20190619
  Receipt Date: 20190619
  Transmission Date: 20190711
  Serious: Yes (Death, Hospitalization, Other)
  Sender: FDA-Public Use
  Company Number: CA-AUROBINDO-AUR-APL-2019-034387

PATIENT

DRUGS (7)
  1. ULTRAM [Concomitant]
     Active Substance: TRAMADOL HYDROCHLORIDE
     Indication: BACK PAIN
     Dosage: UNK
     Route: 065
  2. OFEV [Suspect]
     Active Substance: NINTEDANIB
     Dosage: 150 MILLIGRAM, TWO TIMES A DAY
     Route: 048
  3. OFEV [Suspect]
     Active Substance: NINTEDANIB
     Dosage: 150 MILLIGRAM, TWO TIMES A DAY
     Route: 048
  4. LOPERAMIDE [Concomitant]
     Active Substance: LOPERAMIDE
     Indication: PRODUCT USED FOR UNKNOWN INDICATION
     Dosage: UNK
     Route: 065
  5. OFEV [Suspect]
     Active Substance: NINTEDANIB
     Dosage: 100 MILLIGRAM, TWO TIMES A DAY
     Route: 048
  6. OFEV [Suspect]
     Active Substance: NINTEDANIB
     Indication: IDIOPATHIC PULMONARY FIBROSIS
     Dosage: 100 MILLIGRAM, TWO TIMES A DAY
     Route: 048
  7. AZITHROMYCIN ANHYDROUS. [Suspect]
     Active Substance: AZITHROMYCIN ANHYDROUS
     Indication: PRODUCT USED FOR UNKNOWN INDICATION
     Dosage: 250 MILLIGRAM, 3 TIMES IN A WEEK
     Route: 065

REACTIONS (22)
  - Cough [Fatal]
  - Eye colour change [Fatal]
  - Asthenia [Fatal]
  - Drug interaction [Fatal]
  - Oral fungal infection [Fatal]
  - Dysphonia [Fatal]
  - Dry mouth [Fatal]
  - Feeling abnormal [Fatal]
  - Intercepted product prescribing error [Fatal]
  - Nasopharyngitis [Fatal]
  - Oxygen therapy [Fatal]
  - Myocardial infarction [Fatal]
  - Tremor [Fatal]
  - Arthralgia [Fatal]
  - Lung infection [Fatal]
  - Productive cough [Fatal]
  - Death [Fatal]
  - Diarrhoea [Fatal]
  - Dyspnoea [Fatal]
  - Labelled drug-drug interaction medication error [Fatal]
  - Stent placement [Fatal]
  - Decreased appetite [Fatal]
